FAERS Safety Report 15508316 (Version 1)
Quarter: 2018Q4

REPORT INFORMATION
  Report Type: Spontaneous
  Country: US (occurrence: US)
  Receive Date: 20181016
  Receipt Date: 20181016
  Transmission Date: 20190205
  Serious: Yes (Other)
  Sender: FDA-Public Use
  Company Number: US-MYLANLABS-2018M1074839

PATIENT
  Sex: Female
  Weight: 68 kg

DRUGS (1)
  1. HEPARIN [Suspect]
     Active Substance: HEPARIN SODIUM
     Indication: PROPHYLAXIS
     Dosage: UNK
     Route: 042

REACTIONS (2)
  - Hypersensitivity [Not Recovered/Not Resolved]
  - Haemorrhage [Not Recovered/Not Resolved]
